FAERS Safety Report 18630089 (Version 2)
Quarter: 2021Q2

REPORT INFORMATION
  Report Type: Spontaneous
  Country: CA (occurrence: CA)
  Receive Date: 20201217
  Receipt Date: 20210407
  Transmission Date: 20210717
  Serious: Yes (Other)
  Sender: FDA-Public Use
  Company Number: CA-PFIZER INC-2020180806

PATIENT
  Age: 65 Year
  Sex: Female

DRUGS (3)
  1. METHOTREXATE. [Concomitant]
     Active Substance: METHOTREXATE
     Indication: PSORIATIC ARTHROPATHY
     Dosage: 1 DF (DOSAGE INFORMATION AND DISCONTINUATION DATE UNAVAILABLE)
     Route: 065
  2. XELJANZ [Suspect]
     Active Substance: TOFACITINIB CITRATE
     Indication: PSORIATIC ARTHROPATHY
     Dosage: 5 MG, 1X/DAY
     Route: 048
     Dates: start: 20200420, end: 20201206
  3. TENORMIN [Concomitant]
     Active Substance: ATENOLOL
     Dosage: UNK

REACTIONS (11)
  - Off label use [Unknown]
  - Arthralgia [Unknown]
  - Irritable bowel syndrome [Recovered/Resolved]
  - Asthma [Unknown]
  - Wheezing [Not Recovered/Not Resolved]
  - Nasopharyngitis [Unknown]
  - Increased upper airway secretion [Unknown]
  - Therapeutic product effect delayed [Unknown]
  - Cough [Unknown]
  - Diarrhoea [Unknown]
  - Gastrooesophageal reflux disease [Not Recovered/Not Resolved]

NARRATIVE: CASE EVENT DATE: 2020
